FAERS Safety Report 4448355-6 (Version None)
Quarter: 2004Q3

REPORT INFORMATION
  Report Type: 
  Country: None (occurrence: None)
  Receive Date: 20040913
  Receipt Date: 20040831
  Transmission Date: 20050211
  Serious: Yes (Life-Threatening)
  Sender: FDA-Public Use
  Company Number: STA-AE-04-MTX-391

PATIENT
  Age: 74 Year
  Sex: Female

DRUGS (9)
  1. RHEUMATREX [Suspect]
     Indication: RHEUMATOID ARTHRITIS
     Dosage: 4 MG, 1X PER 1 WK, ORAL
     Route: 048
     Dates: start: 20040716, end: 20040806
  2. ROCALTROL [Concomitant]
  3. METALCAPASE (PENICILLAMINE) [Concomitant]
  4. LOXONIN (LOXOPROFEN SODIUM) [Concomitant]
  5. SELBEX (TEPRENONE) [Concomitant]
  6. ENALAPRIL MALEATE [Concomitant]
  7. FLUMARIN (FLOMOXEF SODIUM) [Concomitant]
  8. TAKEPRON (LASOPRAZOLE) [Concomitant]
  9. GASTER (FAMOTIDINE) [Concomitant]

REACTIONS (4)
  - AGRANULOCYTOSIS [None]
  - DISSEMINATED INTRAVASCULAR COAGULATION [None]
  - MELAENA [None]
  - PANCYTOPENIA [None]
